FAERS Safety Report 16193421 (Version 2)
Quarter: 2019Q3

REPORT INFORMATION
  Report Type: Spontaneous
  Country: CA (occurrence: CA)
  Receive Date: 20190413
  Receipt Date: 20190801
  Transmission Date: 20191004
  Serious: Yes (Other)
  Sender: FDA-Public Use
  Company Number: CA-009507513-1904CAN003774

PATIENT
  Age: 66 Year
  Sex: Male

DRUGS (12)
  1. TWYNSTA [Suspect]
     Active Substance: AMLODIPINE BESYLATE\TELMISARTAN
     Indication: HYPERTENSION
     Dosage: 80 MILLIGRAM, QD
     Route: 065
  2. HUMIRA [Concomitant]
     Active Substance: ADALIMUMAB
     Indication: PRODUCT USED FOR UNKNOWN INDICATION
     Dosage: UNK
     Route: 058
  3. CELEBREX [Suspect]
     Active Substance: CELECOXIB
     Indication: PRODUCT USED FOR UNKNOWN INDICATION
     Dosage: UNK
     Route: 065
  4. ATORVASTATIN CALCIUM. [Suspect]
     Active Substance: ATORVASTATIN CALCIUM
     Indication: PRODUCT USED FOR UNKNOWN INDICATION
     Dosage: 10 MILLIGRAM
     Route: 065
  5. JANUMET [Suspect]
     Active Substance: METFORMIN HYDROCHLORIDE\SITAGLIPTIN PHOSPHATE
     Indication: PRODUCT USED FOR UNKNOWN INDICATION
     Dosage: UNK
     Route: 065
  6. PANTOPRAZOLE [Suspect]
     Active Substance: PANTOPRAZOLE
     Indication: PRODUCT USED FOR UNKNOWN INDICATION
     Dosage: 40 MILLIGRAM, QD, DOSAGE FORM NOT SPECIFIED
     Route: 065
  7. CYCLOBENZAPRINE HYDROCHLORIDE. [Suspect]
     Active Substance: CYCLOBENZAPRINE HYDROCHLORIDE
     Indication: PRODUCT USED FOR UNKNOWN INDICATION
     Dosage: 10 MILLIGRAM, QD
     Route: 065
  8. METHOTREXATE. [Suspect]
     Active Substance: METHOTREXATE
     Indication: PRODUCT USED FOR UNKNOWN INDICATION
     Dosage: 2.5 MILLIGRAM, QD
     Route: 048
  9. ENBREL [Suspect]
     Active Substance: ETANERCEPT
     Indication: PSORIATIC ARTHROPATHY
     Dosage: UNK
     Route: 065
  10. FOLINIC ACID [Suspect]
     Active Substance: LEUCOVORIN
     Indication: PRODUCT USED FOR UNKNOWN INDICATION
     Dosage: 5 MILLIGRAM
     Route: 048
  11. NAPROXEN SODIUM. [Suspect]
     Active Substance: NAPROXEN SODIUM
     Indication: PRODUCT USED FOR UNKNOWN INDICATION
     Dosage: UNK, DOSAGE FORM NOT SPECIFIED
     Route: 065
  12. INFLIXIMAB [Concomitant]
     Active Substance: INFLIXIMAB
     Indication: PSORIATIC ARTHROPATHY
     Dosage: 320 MILLIGRAM
     Route: 065

REACTIONS (5)
  - Product dose omission [Unknown]
  - Throat irritation [Recovering/Resolving]
  - Cough [Recovering/Resolving]
  - Therapeutic product effect decreased [Recovering/Resolving]
  - Blood pressure increased [Recovering/Resolving]
